FAERS Safety Report 9681536 (Version 2)
Quarter: 2013Q4

REPORT INFORMATION
  Report Type: Spontaneous
  Country: US (occurrence: US)
  Receive Date: 20131111
  Receipt Date: 20131213
  Transmission Date: 20140711
  Serious: Yes (Hospitalization)
  Sender: FDA-Public Use
  Company Number: US-GLAXOSMITHKLINE-A1049092A

PATIENT
  Age: 55 Year
  Sex: Male
  Weight: 66.6 kg

DRUGS (7)
  1. OFATUMUMAB [Suspect]
     Indication: CHRONIC LYMPHOCYTIC LEUKAEMIA
     Dosage: 2000MG SEE DOSAGE TEXT
     Route: 042
     Dates: start: 20130617
  2. VANCOMYCIN [Concomitant]
  3. CEFEPIME [Concomitant]
  4. MOUTHWASH [Concomitant]
  5. ACETAMINOPHEN [Concomitant]
  6. LACTOBACILLUS ACIDOPHILUS [Concomitant]
  7. DIPHENHYDRAMINE [Concomitant]

REACTIONS (2)
  - Febrile neutropenia [Recovering/Resolving]
  - Pancytopenia [Recovering/Resolving]
